FAERS Safety Report 7668965-2 (Version None)
Quarter: 2011Q3

REPORT INFORMATION
  Report Type: 
  Country: None (occurrence: None)
  Receive Date: 20110808
  Receipt Date: 20110720
  Transmission Date: 20111222
  Serious: Yes (Hospitalization)
  Sender: FDA-Public Use
  Company Number: US-GLAXOSMITHKLINE-B0717273A

PATIENT
  Age: 71 Year
  Sex: Female

DRUGS (1)
  1. AVANDARYL [Suspect]
     Indication: DIABETES MELLITUS
     Route: 048
     Dates: start: 20060907, end: 20100127

REACTIONS (5)
  - HYPERHIDROSIS [None]
  - ASTHENIA [None]
  - RESTLESSNESS [None]
  - CARDIAC FAILURE CONGESTIVE [None]
  - DYSPNOEA [None]
